FAERS Safety Report 18862601 (Version 1)
Quarter: 2021Q1

REPORT INFORMATION
  Report Type: Spontaneous
  Country: US (occurrence: US)
  Receive Date: 20210209
  Receipt Date: 20210209
  Transmission Date: 20210420
  Serious: No
  Sender: FDA-Public Use
  Company Number: US-PURDUE PHARMA-USA-2020-0167931

PATIENT

DRUGS (1)
  1. BUTRANS [Suspect]
     Active Substance: BUPRENORPHINE
     Indication: ARTHRITIS
     Route: 062

REACTIONS (1)
  - Withdrawal syndrome [Unknown]
